FAERS Safety Report 24083710 (Version 2)
Quarter: 2024Q3

REPORT INFORMATION
  Report Type: Report from Study
  Country: US (occurrence: US)
  Receive Date: 20240712
  Receipt Date: 20240911
  Transmission Date: 20241017
  Serious: No
  Sender: ROCHE
  Company Number: US-ROCHE-10000024959

PATIENT
  Age: 42 Year
  Sex: Female
  Weight: 77.11 kg

DRUGS (4)
  1. OCRELIZUMAB [Suspect]
     Active Substance: OCRELIZUMAB
     Indication: Relapsing-remitting multiple sclerosis
     Route: 042
  2. RITUXAN [Suspect]
     Active Substance: RITUXIMAB
     Indication: Relapsing-remitting multiple sclerosis
     Route: 042
     Dates: end: 20240228
  3. EMGALITY [Concomitant]
     Active Substance: GALCANEZUMAB-GNLM
  4. IMITREX [Concomitant]
     Active Substance: SUMATRIPTAN SUCCINATE

REACTIONS (10)
  - COVID-19 [Recovered/Resolved]
  - Multiple sclerosis [Unknown]
  - Peroneal nerve palsy [Recovered/Resolved]
  - Trigeminal neuralgia [Recovered/Resolved]
  - Pain [Recovered/Resolved]
  - Nasopharyngitis [Recovered/Resolved]
  - Pyrexia [Unknown]
  - Pain [Unknown]
  - Cognitive disorder [Recovered/Resolved]
  - Off label use [Unknown]

NARRATIVE: CASE EVENT DATE: 20240601
